FAERS Safety Report 22662337 (Version 6)
Quarter: 2024Q2

REPORT INFORMATION
  Report Type: Spontaneous
  Country: CA (occurrence: CA)
  Receive Date: 20230701
  Receipt Date: 20240409
  Transmission Date: 20240716
  Serious: Yes (Other)
  Sender: FDA-Public Use
  Company Number: CA-CELLTRION INC.-2023CA009763

PATIENT

DRUGS (5)
  1. INFLECTRA [Suspect]
     Active Substance: INFLIXIMAB-DYYB
     Indication: Crohn^s disease
     Dosage: 500 MG, Q 0, 2, 6 WEEKS THEN EVERY 8 WEEKS
     Route: 042
     Dates: start: 20230123, end: 20230308
  2. INFLECTRA [Suspect]
     Active Substance: INFLIXIMAB-DYYB
     Dosage: 800 MG, EVERY 8 WEEKS
     Route: 042
     Dates: start: 20230503, end: 20230503
  3. INFLECTRA [Suspect]
     Active Substance: INFLIXIMAB-DYYB
     Dosage: 800 MG, EVERY 7 WEEKS
     Route: 042
     Dates: start: 20230622, end: 20230622
  4. INFLECTRA [Suspect]
     Active Substance: INFLIXIMAB-DYYB
     Dosage: 800 MG, RE-INDUCTION AT WEEK 0, 2 AND 6 THE EVERY 7 WEEKS (800MG AFTER 40 WEEKS AND 5 DAYS)
     Route: 042
     Dates: start: 20240328
  5. PREDNISONE [Concomitant]
     Active Substance: PREDNISONE
     Dosage: 1 DF
     Dates: start: 202211

REACTIONS (6)
  - Intestinal resection [Recovering/Resolving]
  - Off label use [Unknown]
  - Off label use [Unknown]
  - Off label use [Unknown]
  - Intentional product use issue [Unknown]
  - Inappropriate schedule of product administration [Unknown]

NARRATIVE: CASE EVENT DATE: 20230101
